FAERS Safety Report 7131472-X (Version None)
Quarter: 2010Q4

REPORT INFORMATION
  Report Type: 
  Country: None (occurrence: None)
  Receive Date: 20101201
  Receipt Date: 20101126
  Transmission Date: 20110411
  Serious: Yes (Other)
  Sender: FDA-Public Use
  Company Number: GB-TEVA-256803ISR

PATIENT
  Sex: Female

DRUGS (3)
  1. CLOTRIMAZOLE [Suspect]
     Indication: CANDIDIASIS
  2. FLUCONAZOLE [Suspect]
     Indication: CANDIDIASIS
  3. CILEST [Suspect]
     Indication: CONTRACEPTION

REACTIONS (1)
  - METRORRHAGIA [None]
